FAERS Safety Report 8006375-9 (Version None)
Quarter: 2011Q4

REPORT INFORMATION
  Report Type: 
  Country: None (occurrence: None)
  Receive Date: 20111226
  Receipt Date: 20111219
  Transmission Date: 20120403
  Serious: Yes (Other)
  Sender: FDA-Public Use
  Company Number: PHEH2011US07776

PATIENT
  Age: 73 Year
  Sex: Female
  Weight: 54.422 kg

DRUGS (1)
  1. TOBI [Suspect]
     Indication: CYSTIC FIBROSIS
     Dosage: 300 MG, INHALE I AMPULE VIA NEBULIZER TWICE A DAY FOR 28 DAYS ON AND 28 DAYS OFF
     Dates: start: 20110912

REACTIONS (3)
  - INFECTION [None]
  - COUGH [None]
  - PRODUCTIVE COUGH [None]
